FAERS Safety Report 7551384-7 (Version None)
Quarter: 2011Q2

REPORT INFORMATION
  Report Type: 
  Country: None (occurrence: None)
  Receive Date: 20110616
  Receipt Date: 20110608
  Transmission Date: 20111010
  Serious: Yes (Death, Other)
  Sender: FDA-Public Use
  Company Number: JP-GENZYME-THYM-1002518

PATIENT
  Sex: Male
  Weight: 55 kg

DRUGS (23)
  1. THYMOGLOBULIN [Suspect]
     Dosage: 71.8 MG, QD
     Route: 042
     Dates: start: 20100715, end: 20100717
  2. RILMAZAFONE HYDROCHLORIDE [Concomitant]
     Indication: INSOMNIA
     Dosage: UNK
     Dates: start: 20100123, end: 20100718
  3. ACYCLOVIR [Concomitant]
     Indication: PROPHYLAXIS
     Dosage: UNK
     Dates: start: 20100714, end: 20100719
  4. ALLOPURINOL [Concomitant]
     Indication: INFECTION PROPHYLAXIS
     Dosage: UNK
     Dates: start: 20100129, end: 20100718
  5. MICAFUNGIN SODIUM [Concomitant]
     Indication: INFECTION PROPHYLAXIS
     Dosage: UNK
     Dates: start: 20100714, end: 20100719
  6. THYMOGLOBULIN [Suspect]
     Indication: BONE MARROW CONDITIONING REGIMEN
     Dosage: 69.3 MG, QD
     Route: 042
     Dates: start: 20100714, end: 20100714
  7. LANSOPRAZOLE [Concomitant]
     Indication: PROPHYLAXIS AGAINST GASTROINTESTINAL ULCER
     Dosage: UNK
     Dates: start: 20100325, end: 20100719
  8. GRANISETRON HCL [Concomitant]
     Indication: PROPHYLAXIS
     Dosage: UNK
     Dates: start: 20100714, end: 20100719
  9. PREDNISONE [Concomitant]
     Indication: BONE MARROW FAILURE
     Dosage: UNK
     Dates: start: 20090824, end: 20100719
  10. REBAMIPIDE [Concomitant]
     Indication: PROPHYLAXIS
     Dosage: UNK
     Dates: start: 20100126, end: 20100719
  11. CIPROFLOXACIN HYDROCHLORIDE [Concomitant]
     Indication: INFECTION PROPHYLAXIS
     Dosage: UNK
     Dates: start: 20100126, end: 20100719
  12. IMMUNOGLOBULINS [Concomitant]
     Indication: INFECTION PROPHYLAXIS
     Dosage: UNK
     Dates: start: 20090408, end: 20100718
  13. TPN [Concomitant]
     Indication: INADEQUATE DIET
     Dosage: UNK
     Dates: start: 20100623, end: 20100719
  14. SULPIRIDE [Concomitant]
     Indication: GASTRITIS PROPHYLAXIS
     Dosage: UNK
     Dates: start: 20100511, end: 20100719
  15. GLYCYRRHIZIN GLYCINE CYSTEINE COMBINED DRUG [Concomitant]
     Indication: LIVER DISORDER
     Dosage: UNK
     Dates: start: 20100712, end: 20100716
  16. METHYLPREDNISOLONE SODIUM SUCCINATE [Concomitant]
     Indication: BONE MARROW CONDITIONING REGIMEN
     Dosage: UNK
     Dates: start: 20100714, end: 20100719
  17. FLUDARA [Suspect]
     Indication: MYELODYSPLASTIC SYNDROME
     Dosage: UNK
     Route: 065
     Dates: start: 20100714, end: 20100718
  18. SENNOSIDE [Concomitant]
     Indication: CONSTIPATION
     Dosage: UNK
     Dates: start: 20090411, end: 20100718
  19. POVIDONE IODINE [Concomitant]
     Indication: INFECTION PROPHYLAXIS
     Dosage: UNK
     Dates: start: 20100718, end: 20100719
  20. LOXOPROFEN SODIUM [Concomitant]
     Indication: PAIN IN EXTREMITY
     Dosage: UNK
     Dates: start: 20100714, end: 20100718
  21. URSODIOL [Concomitant]
     Indication: PROPHYLAXIS
     Dosage: UNK
     Dates: start: 20090825, end: 20100718
  22. TACROLIMUS [Concomitant]
     Indication: PROPHYLAXIS
     Dosage: UNK
     Dates: start: 20100719, end: 20100719
  23. MYCOPHENOLATE MEFETIL [Concomitant]
     Indication: MYELODYSPLASTIC SYNDROME
     Dosage: UNK
     Dates: start: 20100201, end: 20100719

REACTIONS (6)
  - PYREXIA [None]
  - TRANSPLANT FAILURE [None]
  - PULMONARY OEDEMA [None]
  - HYPERTENSION [None]
  - FEEDING DISORDER [None]
  - SERUM SICKNESS [None]
